FAERS Safety Report 7791923-4 (Version None)
Quarter: 2011Q4

REPORT INFORMATION
  Report Type: 
  Country: None (occurrence: None)
  Receive Date: 20111003
  Receipt Date: 20110930
  Transmission Date: 20120403
  Serious: Yes (Other)
  Sender: FDA-Public Use
  Company Number: US-PFIZER INC-2011234297

PATIENT
  Sex: Female
  Weight: 56.689 kg

DRUGS (2)
  1. XANAX [Suspect]
     Indication: PANIC ATTACK
     Dosage: 1 MG, 4X/DAY
     Route: 048
  2. XANAX [Suspect]
     Dosage: 1.25 MG, 4X/DAY
     Route: 048

REACTIONS (3)
  - ERYTHEMA [None]
  - ALANINE AMINOTRANSFERASE INCREASED [None]
  - HYPERAESTHESIA [None]
